FAERS Safety Report 6949071-9 (Version None)
Quarter: 2010Q3

REPORT INFORMATION
  Report Type: 
  Country: None (occurrence: None)
  Receive Date: 20100828
  Receipt Date: 20091207
  Transmission Date: 20110219
  Serious: No
  Sender: FDA-Public Use
  Company Number: US-ABBOTT-09P-163-0613169-00

PATIENT
  Sex: Female
  Weight: 74.91 kg

DRUGS (8)
  1. NIASPAN [Suspect]
     Indication: BLOOD CHOLESTEROL INCREASED
     Route: 048
     Dates: start: 20091101
  2. NIASPAN [Suspect]
     Route: 048
     Dates: start: 20091001, end: 20091101
  3. ALTACE [Concomitant]
     Indication: CARDIAC DISORDER
  4. COQ-10 [Concomitant]
     Indication: CARDIAC DISORDER
  5. FISH OIL [Concomitant]
     Indication: MEDICAL DIET
  6. MULTI-VITAMIN [Concomitant]
     Indication: VITAMIN SUPPLEMENTATION
  7. COREG [Concomitant]
     Indication: CARDIAC DISORDER
  8. ASPIRIN [Concomitant]
     Indication: CARDIAC DISORDER
     Route: 048

REACTIONS (1)
  - APHTHOUS STOMATITIS [None]
